FAERS Safety Report 7274377-6 (Version None)
Quarter: 2011Q1

REPORT INFORMATION
  Report Type: 
  Country: None (occurrence: None)
  Receive Date: 20110201
  Receipt Date: 20110201
  Transmission Date: 20110831
  Serious: Yes (Other)
  Sender: FDA-Public Use
  Company Number: None

PATIENT
  Age: 38 Year
  Sex: Female
  Weight: 53.5244 kg

DRUGS (1)
  1. ZICAM NASAL SWABS ZICAM LLC [Suspect]

REACTIONS (4)
  - JOINT SWELLING [None]
  - LOCAL SWELLING [None]
  - SWELLING FACE [None]
  - ERYTHEMA [None]
